FAERS Safety Report 4278990-X (Version None)
Quarter: 2004Q1

REPORT INFORMATION
  Report Type: 
  Country: None (occurrence: None)
  Receive Date: 20040122
  Receipt Date: 20040122
  Transmission Date: 20041129
  Serious: Yes (Life-Threatening, Hospitalization)
  Sender: FDA-Public Use
  Company Number: None

PATIENT
  Age: 82 Year
  Sex: Female

DRUGS (1)
  1. TERBUTALINE SULFATE [Suspect]
     Indication: ASTHMA
     Dosage: .25 MG SQ
     Dates: start: 20031017

REACTIONS (1)
  - TROPONIN INCREASED [None]
